FAERS Safety Report 5199532-0 (Version None)
Quarter: 2006Q4

REPORT INFORMATION
  Report Type: 
  Country: None (occurrence: None)
  Receive Date: 20061229
  Receipt Date: 20061221
  Transmission Date: 20070319
  Serious: Yes (Death)
  Sender: FDA-Public Use
  Company Number: 2006SP008797

PATIENT
  Age: 49 Year
  Sex: Female

DRUGS (3)
  1. PEG-INTRON [Suspect]
     Indication: HEPATITIS C
     Dosage: 100 MCG; QD; SC
     Route: 058
     Dates: start: 20040427
  2. MARCUMAR [Concomitant]
  3. BELOC [Concomitant]

REACTIONS (1)
  - DEATH [None]
